FAERS Safety Report 17314999 (Version 2)
Quarter: 2020Q2

REPORT INFORMATION
  Report Type: Spontaneous
  Country: US (occurrence: US)
  Receive Date: 20200124
  Receipt Date: 20200514
  Transmission Date: 20200713
  Serious: Yes (Other)
  Sender: FDA-Public Use
  Company Number: US-SA-2020SA015961

PATIENT
  Age: 40 Year
  Sex: Female
  Weight: 102 kg

DRUGS (23)
  1. PREDNISONE. [Suspect]
     Active Substance: PREDNISONE
     Dosage: 20 MG, QD
     Route: 048
     Dates: start: 201904
  2. METHOTREXATE. [Suspect]
     Active Substance: METHOTREXATE
     Indication: UVEITIS
     Dosage: 12.5 MG
     Route: 065
     Dates: start: 20190319
  3. SINGULAIR [Concomitant]
     Active Substance: MONTELUKAST SODIUM
     Indication: SEASONAL ALLERGY
     Dosage: 10 MG, QD
     Route: 048
  4. BOTOX [Concomitant]
     Active Substance: ONABOTULINUMTOXINA
     Indication: MIGRAINE PROPHYLAXIS
     Dosage: 155 U, Q12W
     Route: 030
     Dates: start: 201803
  5. VITAMIN D3 [Concomitant]
     Active Substance: CHOLECALCIFEROL
     Indication: VITAMIN D DEFICIENCY
     Dosage: 5000 IU, QD
     Route: 048
  6. VALIUM [Concomitant]
     Active Substance: DIAZEPAM
     Indication: ANXIETY
     Dosage: 0.5-1 TABLET, TID
     Route: 048
  7. PROPARACAINE [PROXYMETACAINE] [Concomitant]
     Dosage: 1 DROP
     Route: 061
     Dates: start: 20191217
  8. AUBAGIO [Suspect]
     Active Substance: TERIFLUNOMIDE
     Dosage: 14 MG
     Route: 048
     Dates: start: 2014
  9. PROPRANOLOL [Concomitant]
     Active Substance: PROPRANOLOL HYDROCHLORIDE
     Indication: HEADACHE
     Dosage: 60 MG, TID
     Route: 048
     Dates: start: 201904
  10. PREDNISONE. [Suspect]
     Active Substance: PREDNISONE
     Indication: UVEITIS
     Dosage: 80 MG, QD
     Route: 048
     Dates: start: 2019, end: 2019
  11. AMLODIPINE [Concomitant]
     Active Substance: AMLODIPINE BESYLATE
     Indication: HYPERTENSION
     Dosage: 10 MG, QD
     Route: 048
  12. SYNTHROID [Concomitant]
     Active Substance: LEVOTHYROXINE SODIUM
     Indication: HYPOTHYROIDISM
     Dosage: 100 UG, QD
     Route: 048
     Dates: start: 201904
  13. FLONASE [Concomitant]
     Active Substance: FLUTICASONE PROPIONATE
     Dosage: 1 SPRAY
     Route: 045
     Dates: start: 201904
  14. DORZOLAMIDE HYDROCHLORIDE. [Suspect]
     Active Substance: DORZOLAMIDE HYDROCHLORIDE
     Route: 065
  15. CYANOCOBALAMIN. [Concomitant]
     Active Substance: CYANOCOBALAMIN
     Indication: VITAMIN B12 DEFICIENCY
     Dosage: 1 TABLET, QD
     Route: 048
  16. CYANOCOBALAMIN. [Concomitant]
     Active Substance: CYANOCOBALAMIN
     Indication: FATIGUE
  17. CLARITIN [Concomitant]
     Active Substance: LORATADINE
     Dosage: 1 TABLET, QD
     Route: 048
     Dates: start: 201904
  18. AUBAGIO [Suspect]
     Active Substance: TERIFLUNOMIDE
     Indication: MULTIPLE SCLEROSIS
     Dosage: UNK
     Route: 048
     Dates: start: 201802
  19. VALIUM [Concomitant]
     Active Substance: DIAZEPAM
     Dosage: 1/2-1 TABLET
     Route: 048
  20. IPRATROPIUM [Concomitant]
     Active Substance: IPRATROPIUM
     Indication: ASTHMA
     Dosage: UNK UNK, BID
     Route: 048
  21. PROPRANOLOL [Concomitant]
     Active Substance: PROPRANOLOL HYDROCHLORIDE
     Indication: MIGRAINE
     Dosage: 20 MG, TID
     Route: 048
  22. NORCO [Concomitant]
     Active Substance: ACETAMINOPHEN\HYDROCODONE BITARTRATE
     Indication: PAIN
     Dosage: 7.5-325 MG, Q6H AS NEEDED
     Route: 048
     Dates: start: 201904
  23. MOTRIN [Concomitant]
     Active Substance: IBUPROFEN
     Dosage: 1 TABLET, TID AS NEEDED
     Route: 048
     Dates: start: 201904

REACTIONS (20)
  - Eye pain [Recovering/Resolving]
  - Blindness [Recovering/Resolving]
  - Macular oedema [Recovering/Resolving]
  - Fundoscopy abnormal [Unknown]
  - Metamorphopsia [Unknown]
  - Oedema peripheral [Unknown]
  - Sinusitis [Unknown]
  - Vitreous floaters [Unknown]
  - Visual field defect [Unknown]
  - Eye irritation [Unknown]
  - Pigmentation disorder [Unknown]
  - Uveitis [Recovering/Resolving]
  - Vision blurred [Recovering/Resolving]
  - Condition aggravated [Recovering/Resolving]
  - Visual impairment [Unknown]
  - Optic neuritis [Recovering/Resolving]
  - Cataract subcapsular [Unknown]
  - Retinitis pigmentosa [Recovering/Resolving]
  - Macular fibrosis [Unknown]
  - Abdominal discomfort [Unknown]

NARRATIVE: CASE EVENT DATE: 201812
